FAERS Safety Report 4710030-8 (Version None)
Quarter: 2005Q3

REPORT INFORMATION
  Report Type: 
  Country: None (occurrence: None)
  Receive Date: 20050708
  Receipt Date: 20050304
  Transmission Date: 20060218
  Serious: Yes (Other)
  Sender: FDA-Public Use
  Company Number: PHEH2005US02712

PATIENT
  Age: 61 Year
  Sex: Female

DRUGS (14)
  1. ZOMETA [Suspect]
     Indication: METASTASES TO BONE
     Dosage: UNK, UNK
     Route: 042
     Dates: start: 20021029
  2. PAMIDRONATE DISODIUM [Suspect]
     Indication: METASTASES TO BONE
     Dosage: 90 MG, QW4
     Route: 042
     Dates: start: 19990413, end: 20020916
  3. DECADRON /CAN/ [Concomitant]
     Indication: METASTASES TO BONE
     Dosage: 2MG DAILY INITIALLY NOW RANGING 0.5MG-1MG
     Dates: start: 20040203
  4. COUMADIN [Concomitant]
     Indication: DEEP VEIN THROMBOSIS
  5. PROCRIT /00909301/ [Concomitant]
     Indication: ANAEMIA
  6. RADIATION THERAPY [Concomitant]
     Indication: PAIN
     Dosage: 2000 CGY
     Dates: start: 20030428, end: 20030502
  7. RADIATION THERAPY [Concomitant]
     Dates: start: 20040301, end: 20040301
  8. RADIATION THERAPY [Concomitant]
     Dosage: 3000 CGY
     Dates: start: 20040628, end: 20040712
  9. ADRIAMYCIN + TAXOL [Concomitant]
     Indication: BREAST CANCER METASTATIC
     Dosage: 150 MG/M2, UNK
     Dates: start: 20000518, end: 20001012
  10. CYCLOPHOSPHAMIDE + 5-FU + METHOTREXATE [Concomitant]
     Indication: BREAST CANCER METASTATIC
     Dosage: 2 CYCLES
     Dates: start: 20030204, end: 20030225
  11. TAXOL + CARBOPLATIN [Concomitant]
     Indication: BREAST CANCER METASTATIC
     Dosage: 20 DOSES
     Dates: start: 20030320, end: 20030916
  12. NAVELBINE [Concomitant]
     Indication: BREAST CANCER METASTATIC
     Dosage: 53 MG, UNK
     Route: 042
     Dates: start: 20030930, end: 20031204
  13. GEMZAR [Concomitant]
     Indication: BREAST CANCER METASTATIC
     Dosage: 1730 MG, 9 DOSES
     Dates: start: 20031230, end: 20040224
  14. XELODA [Concomitant]
     Dosage: 1500 MG, BID X 7 DAYS
     Dates: start: 20040302, end: 20050510

REACTIONS (4)
  - ABSCESS [None]
  - OSTEONECROSIS [None]
  - TOOTH EXTRACTION [None]
  - WOUND DEBRIDEMENT [None]
